FAERS Safety Report 13503670 (Version 1)
Quarter: 2017Q2

REPORT INFORMATION
  Report Type: Spontaneous
  Country: PH (occurrence: PH)
  Receive Date: 20170502
  Receipt Date: 20170502
  Transmission Date: 20170830
  Serious: Yes (Death)
  Sender: FDA-Public Use
  Company Number: PH-PFIZER INC-2017187018

PATIENT
  Sex: Male

DRUGS (4)
  1. ERAXIS [Suspect]
     Active Substance: ANIDULAFUNGIN
     Dosage: UNK
  2. ZYVOX [Suspect]
     Active Substance: LINEZOLID
     Indication: SEPSIS
     Dosage: UNK
     Dates: start: 20170423
  3. OXACILLIN [Concomitant]
     Active Substance: OXACILLIN SODIUM
  4. MEROPENEM. [Concomitant]
     Active Substance: MEROPENEM

REACTIONS (1)
  - Death [Fatal]
